FAERS Safety Report 7331239-3 (Version None)
Quarter: 2011Q1

REPORT INFORMATION
  Report Type: 
  Country: None (occurrence: None)
  Receive Date: 20110304
  Receipt Date: 20110301
  Transmission Date: 20110831
  Serious: Yes (Other)
  Sender: FDA-Public Use
  Company Number: LV-PFIZER INC-2011043946

PATIENT
  Sex: Female

DRUGS (1)
  1. ZITRAVAL [Suspect]
     Dosage: 2 G, SINGLE
     Route: 048

REACTIONS (4)
  - LEUKOPENIA [None]
  - PNEUMONIA [None]
  - DIARRHOEA [None]
  - POISONING [None]
